FAERS Safety Report 4765729-4 (Version None)
Quarter: 2005Q3

REPORT INFORMATION
  Report Type: 
  Country: None (occurrence: None)
  Receive Date: 20050912
  Receipt Date: 20050831
  Transmission Date: 20060218
  Serious: Yes (Hospitalization)
  Sender: FDA-Public Use
  Company Number: BE-BRISTOL-MYERS SQUIBB COMPANY-13096615

PATIENT
  Age: 43 Year
  Sex: Female
  Weight: 64 kg

DRUGS (3)
  1. ATAZANAVIR [Suspect]
     Indication: HIV INFECTION
     Route: 048
     Dates: start: 20030301
  2. COMBIVIR [Concomitant]
     Dosage: LAMIVUDINE 150 MG + ZIDOVUDINE 300 MG
     Route: 048
     Dates: start: 19990101
  3. DAFALGAN [Concomitant]
     Indication: HEADACHE
     Route: 048

REACTIONS (3)
  - PYREXIA [None]
  - VIRAL INFECTION [None]
  - VOMITING [None]
